FAERS Safety Report 10466388 (Version 1)
Quarter: 2014Q3

REPORT INFORMATION
  Report Type: Spontaneous
  Country: US (occurrence: None)
  Receive Date: 20140919
  Receipt Date: 20140919
  Transmission Date: 20150326
  Serious: Yes (Life-Threatening, Hospitalization, Disabling)
  Sender: FDA-Public Use
  Company Number: None

PATIENT
  Age: 58 Year
  Sex: Female

DRUGS (1)
  1. TYLENOL [Suspect]
     Active Substance: ACETAMINOPHEN
     Indication: HEADACHE
     Dates: start: 20140913

REACTIONS (6)
  - Mouth swelling [None]
  - Sensation of foreign body [None]
  - Speech disorder [None]
  - Throat tightness [None]
  - Oropharyngeal pain [None]
  - Drug hypersensitivity [None]

NARRATIVE: CASE EVENT DATE: 20140913
